FAERS Safety Report 7459391-X (Version None)
Quarter: 2011Q2

REPORT INFORMATION
  Report Type: 
  Country: None (occurrence: None)
  Receive Date: 20110504
  Receipt Date: 20110504
  Transmission Date: 20111010
  Serious: Yes (Hospitalization, Other)
  Sender: FDA-Public Use
  Company Number: None

PATIENT
  Age: 40 Year
  Sex: Male
  Weight: 93.2 kg

DRUGS (1)
  1. PRISTIQ [Suspect]
     Indication: DEPRESSION
     Dosage: 100MG DAILY ORAL
     Route: 048
     Dates: start: 20110324, end: 20110413

REACTIONS (2)
  - SUICIDAL IDEATION [None]
  - ANXIETY [None]
